FAERS Safety Report 8010925-6 (Version None)
Quarter: 2011Q4

REPORT INFORMATION
  Report Type: 
  Country: None (occurrence: None)
  Receive Date: 20111228
  Receipt Date: 20111215
  Transmission Date: 20120403
  Serious: Yes (Hospitalization)
  Sender: FDA-Public Use
  Company Number: IT-BAYER-2011-117057

PATIENT
  Age: 52 Year
  Sex: Male

DRUGS (15)
  1. ENALAPRIL MALEATE [Concomitant]
  2. LANSOPRAZOLE [Concomitant]
  3. COLECALCIFEROL [Concomitant]
  4. ASPIRIN [Suspect]
     Indication: CORONARY ARTERY DISEASE
     Dosage: 100 MG, QD
     Route: 048
     Dates: start: 20110101, end: 20111124
  5. ALGINOR [Concomitant]
  6. ATORVASTATIN CALCIUM [Concomitant]
  7. FLORACID [Concomitant]
  8. TAMSULOSIN HYDROCHLORIDE [Concomitant]
  9. ALLOPURINOL [Concomitant]
  10. LASIX [Concomitant]
  11. CRANBERRY [Concomitant]
  12. LEVOTHYROXINE SODIUM [Concomitant]
  13. PLAVIX [Suspect]
     Indication: CORONARY ARTERY DISEASE
     Dosage: DAILY DOSE 75 MG
     Route: 048
     Dates: start: 20110101, end: 20111124
  14. LIORESAL [Concomitant]
  15. PIPERACILLIN AND TAZOBACTAM [Concomitant]

REACTIONS (1)
  - MICROCYTIC ANAEMIA [None]
